FAERS Safety Report 17845663 (Version 6)
Quarter: 2022Q2

REPORT INFORMATION
  Report Type: Spontaneous
  Country: US (occurrence: US)
  Receive Date: 20200601
  Receipt Date: 20220427
  Transmission Date: 20220721
  Serious: No
  Sender: FDA-Public Use
  Company Number: US-PFIZER INC-2020213022

PATIENT
  Age: 59 Year
  Sex: Female

DRUGS (1)
  1. PREGABALIN [Suspect]
     Active Substance: PREGABALIN
     Dosage: UNK

REACTIONS (4)
  - Drug ineffective [Unknown]
  - Exposure to communicable disease [Unknown]
  - General physical health deterioration [Unknown]
  - Feeling abnormal [Unknown]
